FAERS Safety Report 11165687 (Version 2)
Quarter: 2016Q4

REPORT INFORMATION
  Report Type: Spontaneous
  Country: US (occurrence: US)
  Receive Date: 20150604
  Receipt Date: 20161221
  Transmission Date: 20170206
  Serious: No
  Sender: FDA-Public Use
  Company Number: US-BAYER-2015-296619

PATIENT
  Age: 36 Year
  Sex: Female

DRUGS (1)
  1. BETASERON [Suspect]
     Active Substance: INTERFERON BETA-1B
     Indication: MULTIPLE SCLEROSIS
     Dosage: 0.25 MG, QOD
     Route: 058
     Dates: start: 20091203

REACTIONS (3)
  - Malaise [None]
  - Drug dose omission [None]
  - Injection site haemorrhage [None]
